FAERS Safety Report 11250775 (Version 2)
Quarter: 2015Q3

REPORT INFORMATION
  Report Type: Spontaneous
  Country: US (occurrence: US)
  Receive Date: 20150708
  Receipt Date: 20150803
  Transmission Date: 20151125
  Serious: No
  Sender: FDA-Public Use
  Company Number: US-ELI_LILLY_AND_COMPANY-US201104003228

PATIENT
  Age: 20 Year
  Sex: Male

DRUGS (8)
  1. PROZAC [Suspect]
     Active Substance: FLUOXETINE HYDROCHLORIDE
     Indication: ANXIETY DISORDER
     Dosage: 40 MG, DAILY (1/D)
  2. PROZAC [Suspect]
     Active Substance: FLUOXETINE HYDROCHLORIDE
     Dosage: 60 MG, DAILY (1/D)
     Dates: start: 20110405
  3. PROZAC [Suspect]
     Active Substance: FLUOXETINE HYDROCHLORIDE
     Dosage: 20 MG, DAILY (1/D)
     Dates: start: 20110411
  4. ZYPREXA [Suspect]
     Active Substance: OLANZAPINE
     Dosage: 10 MG, DAILY (1/D)
     Dates: start: 20110405
  5. ZYPREXA [Suspect]
     Active Substance: OLANZAPINE
     Dosage: 7.5 MG, DAILY (1/D)
  6. XANAX [Concomitant]
     Active Substance: ALPRAZOLAM
  7. ZYPREXA [Suspect]
     Active Substance: OLANZAPINE
     Indication: DECREASED APPETITE
     Dosage: 20 MG, DAILY (1/D)
     Dates: start: 2008
  8. ZYPREXA [Suspect]
     Active Substance: OLANZAPINE
     Dosage: 5 MG, DAILY (1/D)

REACTIONS (4)
  - Stress [Unknown]
  - Eating disorder [Unknown]
  - Off label use [Unknown]
  - Nervousness [Unknown]

NARRATIVE: CASE EVENT DATE: 201103
